FAERS Safety Report 7944505-5 (Version None)
Quarter: 2011Q4

REPORT INFORMATION
  Report Type: 
  Country: None (occurrence: None)
  Receive Date: 20111122
  Receipt Date: 20110728
  Transmission Date: 20120403
  Serious: Yes (Other)
  Sender: FDA-Public Use
  Company Number: PHHY2011US68684

PATIENT
  Age: 71 Year
  Sex: Male
  Weight: 99 kg

DRUGS (6)
  1. NEURONTIN [Concomitant]
  2. LASIX [Concomitant]
  3. COZAAR [Concomitant]
  4. GILENYA [Suspect]
     Indication: MULTIPLE SCLEROSIS
     Dosage: 0.5MG, QD, ORAL
     Route: 048
     Dates: start: 20110727
  5. NORVASC [Concomitant]
  6. LIPITOR [Concomitant]

REACTIONS (2)
  - ELECTROCARDIOGRAM PACEMAKER SPIKE [None]
  - BRADYCARDIA [None]
